FAERS Safety Report 6195850-8 (Version None)
Quarter: 2009Q2

REPORT INFORMATION
  Report Type: 
  Country: None (occurrence: None)
  Receive Date: 20090520
  Receipt Date: 20080314
  Transmission Date: 20091009
  Serious: Yes (Other)
  Sender: FDA-Public Use
  Company Number: US-ASTRAZENECA-2007UW23147

PATIENT
  Age: 473 Month
  Sex: Female

DRUGS (17)
  1. SEROQUEL [Suspect]
     Dosage: 100-400 MG
     Route: 048
     Dates: start: 20030318
  2. SERZONE [Concomitant]
     Dosage: 100 - 200 MG
  3. METFORMIN HCL [Concomitant]
  4. LANTUS [Concomitant]
  5. ABILIFY [Concomitant]
  6. HUMALOG MIX [Concomitant]
  7. LEXAPRO [Concomitant]
  8. CITALOPRAM HYDROBROMIDE [Concomitant]
  9. CLONAZEPAM [Concomitant]
  10. DIAZEPAM [Concomitant]
  11. HALOPERIDOL [Concomitant]
  12. PROPOXYPHENE HCL CAP [Concomitant]
  13. FENTANYL [Concomitant]
  14. OXYCODONE HCL [Concomitant]
  15. GABAPENTIN [Concomitant]
  16. GEODON [Concomitant]
  17. MORPHINE SULFATE [Concomitant]

REACTIONS (8)
  - ABDOMINAL PAIN [None]
  - ARTHRALGIA [None]
  - COLITIS ISCHAEMIC [None]
  - COLONIC POLYP [None]
  - FLANK PAIN [None]
  - GASTRITIS [None]
  - ILL-DEFINED DISORDER [None]
  - PAIN IN EXTREMITY [None]
